FAERS Safety Report 5604747-0 (Version None)
Quarter: 2008Q1

REPORT INFORMATION
  Report Type: 
  Country: None (occurrence: None)
  Receive Date: 20080128
  Receipt Date: 20080122
  Transmission Date: 20080703
  Serious: Yes (Hospitalization, Other)
  Sender: FDA-Public Use
  Company Number: PHBS2007JP20613

PATIENT
  Age: 63 Year
  Sex: Female
  Weight: 43 kg

DRUGS (6)
  1. TEGRETOL [Suspect]
     Indication: EPILEPSY
     Dosage: 400 MG, TID
     Route: 048
  2. TEGRETOL [Suspect]
     Dosage: 800 MG/DAY
  3. TEGRETOL [Suspect]
     Dosage: 600 MG/DAY
     Route: 048
  4. PHENYTOIN [Concomitant]
     Indication: EPILEPSY
     Dosage: 225 MG/DAY
     Route: 048
  5. ZONISAMIDE [Concomitant]
     Indication: EPILEPSY
     Dosage: 200 MG/DAY
     Route: 048
  6. LIPITOR [Concomitant]
     Indication: HYPERLIPIDAEMIA
     Dosage: 10 MG/DAY
     Route: 048

REACTIONS (10)
  - ANTICONVULSANT DRUG LEVEL INCREASED [None]
  - ASTERIXIS [None]
  - BRADYCARDIA [None]
  - DYSKINESIA [None]
  - FALL [None]
  - GAIT DISTURBANCE [None]
  - GENERAL ANAESTHESIA [None]
  - MUSCULAR WEAKNESS [None]
  - OSTEOMYELITIS [None]
  - SEQUESTRECTOMY [None]
